FAERS Safety Report 14303575 (Version 1)
Quarter: 2017Q4

REPORT INFORMATION
  Report Type: Spontaneous
  Country: US (occurrence: US)
  Receive Date: 20171219
  Receipt Date: 20171219
  Transmission Date: 20180321
  Serious: Yes (Hospitalization)
  Sender: FDA-Public Use
  Company Number: None

PATIENT
  Age: 61 Year
  Sex: Female

DRUGS (18)
  1. ONDANSETRON [Concomitant]
     Active Substance: ONDANSETRON
  2. BENADRYL [Concomitant]
     Active Substance: DIPHENHYDRAMINE HYDROCHLORIDE
  3. CARVEDILOL. [Concomitant]
     Active Substance: CARVEDILOL
  4. METOCLOPRAM [Concomitant]
     Active Substance: METOCLOPRAMIDE
  5. MORPHINE [Concomitant]
     Active Substance: MORPHINE
  6. POTASSIUM [Concomitant]
     Active Substance: POTASSIUM
  7. IBRANCE [Suspect]
     Active Substance: PALBOCICLIB
     Indication: BREAST CANCER FEMALE
     Route: 048
     Dates: start: 20170622
  8. LEVEMIR [Concomitant]
     Active Substance: INSULIN DETEMIR
  9. METFORMIN [Concomitant]
     Active Substance: METFORMIN HYDROCHLORIDE
  10. ROPINIROLE. [Concomitant]
     Active Substance: ROPINIROLE
  11. IMODIUM A-D [Concomitant]
     Active Substance: LOPERAMIDE HYDROCHLORIDE
  12. SINGULAIR [Concomitant]
     Active Substance: MONTELUKAST SODIUM
  13. LETROZOLE. [Concomitant]
     Active Substance: LETROZOLE
  14. LORAZEPAM. [Concomitant]
     Active Substance: LORAZEPAM
  15. ASPIRIN. [Concomitant]
     Active Substance: ASPIRIN
  16. CALCIUM [Concomitant]
     Active Substance: CALCIUM
  17. GABAPENTIN. [Concomitant]
     Active Substance: GABAPENTIN
  18. LEVOTHYROXIN [Concomitant]
     Active Substance: LEVOTHYROXINE

REACTIONS (3)
  - Clostridium test positive [None]
  - Influenza [None]
  - White blood cell count decreased [None]

NARRATIVE: CASE EVENT DATE: 20171207
